FAERS Safety Report 8600990-7 (Version None)
Quarter: 2012Q3

REPORT INFORMATION
  Report Type: 
  Country: None (occurrence: None)
  Receive Date: 20120817
  Receipt Date: 20120808
  Transmission Date: 20120928
  Serious: Yes (Other)
  Sender: FDA-Public Use
  Company Number: US-SANOFI-AVENTIS-2012SA039872

PATIENT
  Sex: Female
  Weight: 63.5 kg

DRUGS (9)
  1. LISINOPRIL [Concomitant]
     Indication: LABORATORY TEST ABNORMAL
  2. GLIPIZIDE [Concomitant]
     Indication: DIABETES MELLITUS
     Dosage: TOOK ONE PER DAY.
  3. HYDROXYUREA [Concomitant]
     Dosage: 2 PER DAY.
  4. LANTUS [Suspect]
     Indication: DIABETES MELLITUS
     Dosage: TOOK 22 TO 25 UNITS PER DAY.
     Route: 058
     Dates: start: 20111215
  5. ESOMEPRAZOLE MAGNESIUM [Concomitant]
  6. LANTUS [Suspect]
     Dosage: TOOK 22 TO 25 UNITS PER DAY.
     Route: 058
     Dates: start: 20111215
  7. MECLIZINE [Concomitant]
     Indication: NAUSEA
  8. LANTUS [Suspect]
     Indication: PULMONARY EMBOLISM
     Dosage: TOOK 22 TO 25 UNITS PER DAY.
     Route: 058
     Dates: start: 20111215
  9. LANTUS [Suspect]
     Dosage: TOOK 22 TO 25 UNITS PER DAY.
     Route: 058
     Dates: start: 20111215

REACTIONS (7)
  - BLOOD URINE PRESENT [None]
  - BLOOD GLUCOSE DECREASED [None]
  - DIZZINESS [None]
  - DYSPNOEA [None]
  - ABDOMINAL DISTENSION [None]
  - RENAL FUNCTION TEST ABNORMAL [None]
  - DIABETES MELLITUS INADEQUATE CONTROL [None]
